FAERS Safety Report 12450944 (Version 1)
Quarter: 2016Q2

REPORT INFORMATION
  Report Type: Spontaneous
  Country: US (occurrence: None)
  Receive Date: 20160608
  Receipt Date: 20160608
  Transmission Date: 20160815
  Serious: No
  Sender: FDA-Public Use
  Company Number: None

PATIENT
  Age: 7 Year
  Sex: Female
  Weight: 42.64 kg

DRUGS (3)
  1. OVER THE COUNTER VITAMINS [Concomitant]
  2. FLINSTONES GUMMIES COMPLETE [Concomitant]
  3. QUILLIVANT XR [Suspect]
     Active Substance: METHYLPHENIDATE HYDROCHLORIDE
     Indication: ATTENTION DEFICIT/HYPERACTIVITY DISORDER
     Dosage: 4 MLS  IN THE MORNING TAKEN BY MOUTH
     Route: 048
     Dates: start: 20160501, end: 20160526

REACTIONS (11)
  - Abnormal behaviour [None]
  - Somnolence [None]
  - Frustration tolerance decreased [None]
  - Bruxism [None]
  - Screaming [None]
  - Irritability [None]
  - Grunting [None]
  - Emotional disorder [None]
  - Affective disorder [None]
  - Aggression [None]
  - Anger [None]

NARRATIVE: CASE EVENT DATE: 20160526
